FAERS Safety Report 11107824 (Version 3)
Quarter: 2015Q2

REPORT INFORMATION
  Report Type: Report from Study
  Country: IT (occurrence: IT)
  Receive Date: 20150512
  Receipt Date: 20150615
  Transmission Date: 20150821
  Serious: Yes (Death)
  Sender: FDA-Public Use
  Company Number: PHHO2015IT008278

PATIENT

DRUGS (3)
  1. NO TREATMENT RECEIVED [Suspect]
     Active Substance: UNSPECIFIED INGREDIENT
     Indication: HEART TRANSPLANT
     Dosage: NO TREATMENT
     Route: 065
  2. PREDNISONE. [Concomitant]
     Active Substance: PREDNISONE
     Indication: HEART TRANSPLANT
     Route: 065
  3. SANDIMMUNE [Suspect]
     Active Substance: CYCLOSPORINE
     Indication: HEART TRANSPLANT
     Route: 048

REACTIONS (2)
  - Klebsiella infection [Fatal]
  - Septic shock [Fatal]
